FAERS Safety Report 10185297 (Version 1)
Quarter: 2014Q2

REPORT INFORMATION
  Report Type: Spontaneous
  Country: US (occurrence: None)
  Receive Date: 20140520
  Receipt Date: 20140520
  Transmission Date: 20141212
  Serious: Yes (Hospitalization)
  Sender: FDA-Public Use
  Company Number: None

PATIENT
  Age: 42 Year
  Sex: Female

DRUGS (1)
  1. GADOLINIUM [Suspect]
     Indication: NUCLEAR MAGNETIC RESONANCE IMAGING
     Route: 042
     Dates: start: 20121106, end: 20121106

REACTIONS (6)
  - Hypoaesthesia [None]
  - Paraesthesia [None]
  - Loss of consciousness [None]
  - Dyspnoea [None]
  - Pulse absent [None]
  - Cardiac arrest [None]
